FAERS Safety Report 9807637 (Version 2)
Quarter: 2014Q2

REPORT INFORMATION
  Report Type: Spontaneous
  Country: US (occurrence: US)
  Receive Date: 20140110
  Receipt Date: 20140422
  Transmission Date: 20141212
  Serious: Yes (Death)
  Sender: FDA-Public Use
  Company Number: US-BAYER-2014-003574

PATIENT
  Age: 17 Year
  Sex: Female
  Weight: 218.59 kg

DRUGS (5)
  1. YASMIN [Suspect]
     Dosage: UNK
     Dates: start: 20070126
  2. FOLATE SODIUM [Concomitant]
  3. COLACE [Concomitant]
  4. NORINYL [Concomitant]
  5. PREMARIN [Concomitant]
     Dosage: 25 MG, UNK
     Route: 042

REACTIONS (4)
  - Pulmonary embolism [Fatal]
  - Injury [Fatal]
  - Pain [None]
  - Pain [Fatal]
